FAERS Safety Report 6610461-5 (Version None)
Quarter: 2010Q1

REPORT INFORMATION
  Report Type: 
  Country: None (occurrence: None)
  Receive Date: 20100302
  Receipt Date: 20100222
  Transmission Date: 20100710
  Serious: Yes (Hospitalization)
  Sender: FDA-Public Use
  Company Number: FR-GILEAD-2010-0027211

PATIENT
  Sex: Female

DRUGS (7)
  1. TRUVADA [Suspect]
     Indication: HIV INFECTION
     Route: 048
  2. TRUVADA [Suspect]
     Route: 048
     Dates: start: 20100106, end: 20100118
  3. VIRAMUNE [Suspect]
     Indication: HIV INFECTION
     Route: 048
     Dates: start: 20100106, end: 20100118
  4. INVIRASE [Concomitant]
     Indication: HIV INFECTION
  5. NORVIR [Concomitant]
     Indication: HIV INFECTION
  6. COMBIVIR [Concomitant]
     Indication: HIV INFECTION
  7. SUSTIVA [Concomitant]
     Indication: HIV INFECTION

REACTIONS (3)
  - MYALGIA [None]
  - PYREXIA [None]
  - RASH [None]
